FAERS Safety Report 8588676-9 (Version None)
Quarter: 2012Q3

REPORT INFORMATION
  Report Type: 
  Country: None (occurrence: None)
  Receive Date: 20120813
  Receipt Date: 20120801
  Transmission Date: 20120928
  Serious: Yes (Hospitalization)
  Sender: FDA-Public Use
  Company Number: NL-CELGENEUS-114-21880-12072280

PATIENT
  Sex: Female
  Weight: 73 kg

DRUGS (2)
  1. REVLIMID [Suspect]
     Indication: MULTIPLE MYELOMA
     Dosage: 5 MILLIGRAM
     Route: 048
     Dates: start: 20100322
  2. REVLIMID [Suspect]
     Route: 048
     Dates: start: 20120620

REACTIONS (1)
  - BURSITIS [None]
